FAERS Safety Report 7604106-5 (Version None)
Quarter: 2011Q3

REPORT INFORMATION
  Report Type: 
  Country: None (occurrence: None)
  Receive Date: 20110712
  Receipt Date: 20110711
  Transmission Date: 20111222
  Serious: Yes (Other)
  Sender: FDA-Public Use
  Company Number: US-PFIZER INC-2010047062

PATIENT
  Age: 89 Year
  Sex: Male

DRUGS (5)
  1. LIPITOR [Suspect]
     Dosage: 20 MG, UNK
     Route: 048
  2. LIPITOR [Suspect]
     Indication: BLOOD CHOLESTEROL INCREASED
     Dosage: 10 MG, UNK
     Route: 048
     Dates: start: 20090101
  3. TRICOR [Suspect]
     Dosage: UNK
  4. LIPITOR [Suspect]
     Dosage: 40 MG, UNK
     Route: 048
  5. LIPITOR [Suspect]
     Dosage: 30 MG, UNK
     Route: 048

REACTIONS (6)
  - GAIT DISTURBANCE [None]
  - ABASIA [None]
  - HYPOAESTHESIA [None]
  - MUSCLE INJURY [None]
  - DIABETIC NEUROPATHY [None]
  - MUSCLE DISORDER [None]
